FAERS Safety Report 12322775 (Version 3)
Quarter: 2016Q3

REPORT INFORMATION
  Report Type: Spontaneous
  Country: DE (occurrence: DE)
  Receive Date: 20160502
  Receipt Date: 20160715
  Transmission Date: 20161109
  Serious: Yes (Other)
  Sender: FDA-Public Use
  Company Number: DE-ABBVIE-16P-062-1617428-00

PATIENT
  Sex: Male

DRUGS (6)
  1. TESTOGEL [Suspect]
     Active Substance: TESTOSTERONE
     Indication: ANDROGEN DEFICIENCY
     Route: 065
     Dates: start: 2010, end: 2015
  2. NEBIDO [Suspect]
     Active Substance: TESTOSTERONE UNDECANOATE
     Indication: OSTEOPOROSIS
     Route: 065
  3. TESTOGEL [Suspect]
     Active Substance: TESTOSTERONE
     Indication: OSTEOPOROSIS
     Route: 065
  4. TESTOTOP [Suspect]
     Active Substance: TESTOSTERONE
     Indication: ANDROGEN DEFICIENCY
     Route: 065
     Dates: end: 2015
  5. NEBIDO [Suspect]
     Active Substance: TESTOSTERONE UNDECANOATE
     Indication: ANDROGEN DEFICIENCY
     Route: 065
     Dates: start: 2010
  6. TESTOTOP [Suspect]
     Active Substance: TESTOSTERONE
     Indication: OSTEOPOROSIS

REACTIONS (9)
  - Cardiovascular disorder [Not Recovered/Not Resolved]
  - Flushing [Not Recovered/Not Resolved]
  - Product use issue [Unknown]
  - Hepatic enzyme increased [Recovered/Resolved]
  - Application site acne [Not Recovered/Not Resolved]
  - Meningioma [Unknown]
  - Epilepsy [Unknown]
  - Rosacea [Not Recovered/Not Resolved]
  - Blood pressure increased [Unknown]

NARRATIVE: CASE EVENT DATE: 2010
